FAERS Safety Report 20557689 (Version 2)
Quarter: 2022Q2

REPORT INFORMATION
  Report Type: Report from Study
  Country: BR (occurrence: BR)
  Receive Date: 20220307
  Receipt Date: 20220419
  Transmission Date: 20220721
  Serious: Yes (Other)
  Sender: FDA-Public Use
  Company Number: BR-NOVARTISPH-NVSC2022BR052394

PATIENT
  Age: 76 Year
  Sex: Female

DRUGS (1)
  1. DIOVAN HCT [Suspect]
     Active Substance: HYDROCHLOROTHIAZIDE\VALSARTAN
     Indication: Hypertension
     Dosage: 1 DOSAGE FORM, QD (28 TABLETS) (STARTED APPROXIMATELY 15 YEARS AGO)
     Route: 048

REACTIONS (5)
  - Breast cancer [Unknown]
  - Brain injury [Unknown]
  - Drug dependence [Unknown]
  - Alopecia [Unknown]
  - Hypoacusis [Unknown]
